FAERS Safety Report 18450110 (Version 6)
Quarter: 2022Q2

REPORT INFORMATION
  Report Type: Report from Study
  Country: JP (occurrence: JP)
  Receive Date: 20201102
  Receipt Date: 20220614
  Transmission Date: 20220720
  Serious: Yes (Hospitalization, Other)
  Sender: FDA-Public Use
  Company Number: JP-ALXN-A202015843

PATIENT
  Age: 73 Year
  Sex: Male
  Weight: 52.6 kg

DRUGS (41)
  1. SOLIRIS [Suspect]
     Active Substance: ECULIZUMAB
     Indication: Paroxysmal nocturnal haemoglobinuria
     Dosage: 600 MG, QW
     Route: 042
     Dates: start: 20121116, end: 20121207
  2. SOLIRIS [Suspect]
     Active Substance: ECULIZUMAB
     Dosage: 900 MG, Q2W
     Route: 042
     Dates: start: 20121214, end: 20191018
  3. ULTOMIRIS [Suspect]
     Active Substance: RAVULIZUMAB-CWVZ
     Indication: Paroxysmal nocturnal haemoglobinuria
     Dosage: 2400 MG, SINGLE
     Route: 042
     Dates: start: 20191101, end: 20191101
  4. ULTOMIRIS [Suspect]
     Active Substance: RAVULIZUMAB-CWVZ
     Dosage: 3000 MG, Q56
     Route: 042
     Dates: start: 20191115, end: 20211105
  5. ULTOMIRIS [Suspect]
     Active Substance: RAVULIZUMAB-CWVZ
     Indication: Paroxysmal nocturnal haemoglobinuria
     Dosage: 3000 MG, Q56
     Route: 042
     Dates: start: 20211224
  6. UNSPECIFIED INGREDIENT [Concomitant]
     Active Substance: UNSPECIFIED INGREDIENT
     Indication: Hepatic encephalopathy
     Dosage: 50 G, TID
     Route: 048
     Dates: start: 20170606
  7. ATARAX-P                           /00058402/ [Concomitant]
     Indication: Anaesthetic premedication
     Dosage: 25 MG, QD
     Route: 051
     Dates: start: 20200728, end: 20200728
  8. ATARAX-P                           /00058402/ [Concomitant]
     Dosage: 25 MG, QD
     Route: 051
     Dates: start: 20210423, end: 20210423
  9. ATROPINE                           /00002802/ [Concomitant]
     Indication: Anaesthetic premedication
     Dosage: 0.5 MG, QD
     Route: 051
     Dates: start: 20200728, end: 20200728
  10. ATROPINE                           /00002802/ [Concomitant]
     Dosage: 0.5 MG, QD
     Route: 051
     Dates: start: 20210423, end: 20210423
  11. AMINO ACIDS\DEXTROSE\ELECTROLYTES NOS\VITAMINS [Concomitant]
     Active Substance: AMINO ACIDS\DEXTROSE\ELECTROLYTES NOS\VITAMINS
     Indication: Fluid replacement
     Dosage: 1000 ML, QD
     Route: 051
     Dates: start: 20210905, end: 20210907
  12. CALORYL [Concomitant]
     Indication: Prophylaxis
     Dosage: 16.05 G, TID
     Route: 048
     Dates: start: 20200727, end: 20200805
  13. CALORYL [Concomitant]
     Indication: Hepatic encephalopathy
     Dosage: 16.05 G, QID
     Route: 048
     Dates: start: 20181112, end: 20200726
  14. CALORYL [Concomitant]
     Dosage: 16.05 G, QID
     Route: 048
     Dates: start: 20200806, end: 20210119
  15. CEFOCEF                            /00883901/ [Concomitant]
     Indication: Prophylaxis
     Dosage: 1 G, QD
     Route: 051
     Dates: start: 20200728, end: 20200728
  16. CEFOCEF                            /00883901/ [Concomitant]
     Dosage: 1 G, BID
     Route: 065
     Dates: start: 20210423, end: 20210428
  17. CEFOCEF                            /00883901/ [Concomitant]
     Dosage: 2 G, BID
     Route: 065
     Dates: start: 20200729, end: 20200802
  18. INDERAL [Concomitant]
     Active Substance: PROPRANOLOL HYDROCHLORIDE
     Indication: Prophylaxis
     Dosage: 10 MG, TID
     Route: 048
     Dates: start: 20180130
  19. LEVOCARNITINE [Concomitant]
     Active Substance: LEVOCARNITINE
     Indication: Hepatic encephalopathy
     Dosage: 10 ML, QD
     Route: 048
     Dates: start: 20180418
  20. LACTEC                             /00490001/ [Concomitant]
     Indication: Fluid replacement
     Dosage: 500 ML, QD
     Route: 051
     Dates: start: 20200728, end: 20200728
  21. LACTEC                             /00490001/ [Concomitant]
     Dosage: 500 ML, QD
     Route: 051
     Dates: start: 20210423, end: 20210423
  22. LACTULOSE [Concomitant]
     Active Substance: LACTULOSE
     Indication: Hepatic encephalopathy
     Dosage: 1 DF, TID
     Route: 048
     Dates: start: 20210620
  23. LANSOPRAZOLE [Concomitant]
     Active Substance: LANSOPRAZOLE
     Indication: Prophylaxis
     Dosage: 15 MG, QD
     Route: 048
     Dates: start: 20200727, end: 20200805
  24. LEVOFLOXACIN [Concomitant]
     Active Substance: LEVOFLOXACIN
     Indication: Prophylaxis
     Dosage: 250 MG, QD
     Route: 048
     Dates: start: 20200805, end: 20200811
  25. LEVOFLOXACIN [Concomitant]
     Active Substance: LEVOFLOXACIN
     Dosage: 250 MG, QD
     Route: 048
     Dates: start: 20210429, end: 20210504
  26. LEVOFLOXACIN [Concomitant]
     Active Substance: LEVOFLOXACIN
     Dosage: 500 MG, QD
     Route: 048
     Dates: start: 20210428, end: 20210428
  27. LIDOCAINE HYDROCHLORIDE [Concomitant]
     Active Substance: LIDOCAINE HYDROCHLORIDE
     Indication: Anaesthesia procedure
     Dosage: 10 ML, QD
     Route: 051
     Dates: start: 20200728, end: 20200728
  28. LIDOCAINE HYDROCHLORIDE [Concomitant]
     Active Substance: LIDOCAINE HYDROCHLORIDE
     Indication: Local anaesthesia
     Dosage: 10 ML, QD
     Route: 051
     Dates: start: 20210423, end: 20210423
  29. LINZESS [Concomitant]
     Active Substance: LINACLOTIDE
     Indication: Constipation
     Dosage: 0.25 MG, QD
     Route: 048
     Dates: start: 20191004
  30. MIYA-BM [Concomitant]
     Active Substance: CLOSTRIDIUM BUTYRICUM SPORES STRAIN M-55
     Indication: Constipation
     Dosage: 1 G, TID
     Route: 048
     Dates: start: 20170724, end: 20200305
  31. MIYA-BM [Concomitant]
     Active Substance: CLOSTRIDIUM BUTYRICUM SPORES STRAIN M-55
     Dosage: 2 G, TID
     Route: 048
     Dates: start: 20200306
  32. NEXIUM [Concomitant]
     Active Substance: ESOMEPRAZOLE MAGNESIUM
     Indication: Prophylaxis
     Dosage: 20 MG, QD
     Route: 048
     Dates: start: 20160408, end: 20200726
  33. NEXIUM [Concomitant]
     Active Substance: ESOMEPRAZOLE MAGNESIUM
     Dosage: 20 MG, QD
     Route: 048
     Dates: start: 20200806
  34. MEPERIDINE HYDROCHLORIDE [Concomitant]
     Active Substance: MEPERIDINE HYDROCHLORIDE
     Indication: Anaesthetic premedication
     Dosage: 35 MG, QD
     Route: 051
     Dates: start: 20200728, end: 20200728
  35. MEPERIDINE HYDROCHLORIDE [Concomitant]
     Active Substance: MEPERIDINE HYDROCHLORIDE
     Dosage: 35 MG, QD
     Route: 051
     Dates: start: 20210423, end: 20210423
  36. POLARAMINE [Concomitant]
     Active Substance: DEXCHLORPHENIRAMINE MALEATE
     Indication: Prophylaxis
     Dosage: 5 MG, QD
     Route: 051
     Dates: start: 20200727, end: 20200727
  37. SOLDEM 3A [Concomitant]
     Active Substance: CARBOHYDRATES\POTASSIUM CHLORIDE\SODIUM CHLORIDE\SODIUM LACTATE
     Indication: Fluid replacement
     Dosage: 500 ML, QD
     Route: 051
     Dates: start: 20200728, end: 20200728
  38. SOLDEM 3A [Concomitant]
     Active Substance: CARBOHYDRATES\POTASSIUM CHLORIDE\SODIUM CHLORIDE\SODIUM LACTATE
     Dosage: 500 ML, QD
     Route: 051
     Dates: start: 20210423, end: 20210423
  39. SOLDEM 3A [Concomitant]
     Active Substance: CARBOHYDRATES\POTASSIUM CHLORIDE\SODIUM CHLORIDE\SODIUM LACTATE
     Dosage: 500 ML, QD
     Route: 051
     Dates: start: 20210925, end: 20210928
  40. VEEN D [Concomitant]
     Active Substance: CALCIUM CHLORIDE\DEXTROSE\POTASSIUM CHLORIDE\SODIUM ACETATE\SODIUM CHLORIDE
     Indication: Fluid replacement
     Dosage: 500 ML, QD
     Route: 051
     Dates: start: 20210925, end: 20210928
  41. TADALAFIL [Concomitant]
     Active Substance: TADALAFIL
     Indication: Benign prostatic hyperplasia
     Dosage: 2.5 MG, QD
     Route: 048

REACTIONS (13)
  - Hepatocellular carcinoma [Not Recovered/Not Resolved]
  - Enteritis infectious [Recovered/Resolved]
  - Enterocolitis [Recovered/Resolved]
  - Hepatic encephalopathy [Recovering/Resolving]
  - Condition aggravated [Recovering/Resolving]
  - Zinc deficiency [Unknown]
  - Dyslalia [Recovering/Resolving]
  - Somnolence [Recovering/Resolving]
  - Fall [Recovered/Resolved]
  - Contusion [Recovered/Resolved]
  - Skin abrasion [Recovered/Resolved]
  - Nail injury [Recovering/Resolving]
  - Hypoalbuminaemia [Recovering/Resolving]

NARRATIVE: CASE EVENT DATE: 20200110
